FAERS Safety Report 8105676-3 (Version None)
Quarter: 2012Q1

REPORT INFORMATION
  Report Type: 
  Country: None (occurrence: None)
  Receive Date: 20120201
  Receipt Date: 20120125
  Transmission Date: 20120608
  Serious: Yes (Hospitalization)
  Sender: FDA-Public Use
  Company Number: AU-ROXANE LABORATORIES, INC.-2012-RO-00537RO

PATIENT
  Age: 10 Year
  Sex: Male
  Weight: 30 kg

DRUGS (5)
  1. MORPHINE [Suspect]
     Route: 042
  2. MORPHINE [Suspect]
     Indication: PAIN
     Route: 042
  3. ACETAMINOPHEN [Suspect]
     Indication: PAIN
     Route: 048
  4. ANTIBIOTICS [Concomitant]
     Route: 042
  5. MORPHINE [Suspect]
     Route: 042

REACTIONS (1)
  - COMPARTMENT SYNDROME [None]
